FAERS Safety Report 8366510-X (Version None)
Quarter: 2012Q2

REPORT INFORMATION
  Report Type: 
  Country: None (occurrence: None)
  Receive Date: 20120517
  Receipt Date: 20120508
  Transmission Date: 20120825
  Serious: Yes (Other)
  Sender: FDA-Public Use
  Company Number: PHHY2011BR48711

PATIENT
  Sex: Female
  Weight: 90 kg

DRUGS (8)
  1. FORMOTEROL FUMARATE [Suspect]
     Indication: DEPRESSION
     Dosage: UNK UKN, UNK
  2. ESQUEMIL [Suspect]
  3. HYDERGINE [Suspect]
     Dosage: 1 DF, UNK (ONE TABLET IN MORNING)
     Route: 048
  4. OLCADIL [Suspect]
     Dosage: 2 MG, UNK
  5. HARPADOL [Concomitant]
     Dosage: 400 MG,(ONE TABLET 12/12 HOURS)
     Route: 048
  6. HYDERGINE [Suspect]
     Dosage: (ONE TABLET IN MORNING AND ONE TABLET AT NIGHT)1 DF, BID
     Route: 048
  7. SOMALGIN [Concomitant]
     Indication: THROMBOSIS
     Dosage: 100 MG,(ONE TABLET AFTER LUNCH)
     Route: 048
  8. VICOG [Concomitant]
     Dosage: 3 DF, TID (AT A DOSE OF ONE TABLET AT BREAKFAST, ONE TABLET AT LUNCH AND ONE TABLET AT DINNER)
     Route: 048

REACTIONS (12)
  - HEAD DISCOMFORT [None]
  - OEDEMA PERIPHERAL [None]
  - NERVOUSNESS [None]
  - BLOOD PRESSURE INCREASED [None]
  - NECK PAIN [None]
  - INTENTIONAL DRUG MISUSE [None]
  - DEPRESSION [None]
  - SCOLIOSIS [None]
  - WRONG DRUG ADMINISTERED [None]
  - OSTEOPOROSIS [None]
  - HYPOKINESIA [None]
  - FALL [None]
